FAERS Safety Report 10240579 (Version 1)
Quarter: 2014Q2

REPORT INFORMATION
  Report Type: Spontaneous
  Country: US (occurrence: None)
  Receive Date: 20140613
  Receipt Date: 20140613
  Transmission Date: 20141212
  Serious: No
  Sender: FDA-Public Use
  Company Number: None

PATIENT
  Age: 86 Year
  Sex: Female
  Weight: 45.36 kg

DRUGS (5)
  1. IMIQUIMOD (ALDARA) GLENMARK [Suspect]
     Indication: BASAL CELL CARCINOMA
     Dosage: 5% CREAM   5X^S EVERY WEEK FOR 2 WEEKS ON THE TIP OF THE NOSE
     Route: 061
     Dates: start: 20140517, end: 20140519
  2. FOLIC ACID [Concomitant]
  3. METHOTREXATE [Concomitant]
  4. HYDROCODONE [Concomitant]
  5. ORENCIA [Concomitant]

REACTIONS (3)
  - Application site swelling [None]
  - Application site erythema [None]
  - Application site pain [None]
